FAERS Safety Report 6928786-2 (Version None)
Quarter: 2010Q3

REPORT INFORMATION
  Report Type: 
  Country: None (occurrence: None)
  Receive Date: 20100817
  Receipt Date: 20100805
  Transmission Date: 20110219
  Serious: Yes (Hospitalization, Other)
  Sender: FDA-Public Use
  Company Number: GB-ELI_LILLY_AND_COMPANY-GB201005001708

PATIENT
  Sex: Male
  Weight: 67.1 kg

DRUGS (6)
  1. ALIMTA [Suspect]
     Indication: MESOTHELIOMA
     Dosage: 80% OF RECOMENDED DOSE, UNKNOWN
     Route: 042
     Dates: start: 20100430, end: 20100430
  2. CISPLATIN [Concomitant]
     Indication: MESOTHELIOMA
     Dosage: UNK, UNKNOWN
     Route: 065
  3. ACETAMINOPHEN [Concomitant]
     Dosage: 1 G, AS NEEDED
     Route: 048
     Dates: start: 20100201
  4. FOLIC ACID [Concomitant]
     Dosage: 400 UG, UNKNOWN
     Route: 048
     Dates: start: 20100422
  5. VITAMIN B-12 [Concomitant]
     Dosage: 1 MG, UNKNOWN
     Route: 030
     Dates: start: 20100422
  6. ANTIEMETICS AND ANTINAUSEANTS [Concomitant]
     Dosage: UNK, UNKNOWN
     Route: 065

REACTIONS (2)
  - ATRIAL FIBRILLATION [None]
  - PERICARDITIS [None]
